FAERS Safety Report 20777046 (Version 2)
Quarter: 2022Q2

REPORT INFORMATION
  Report Type: Spontaneous
  Country: JP (occurrence: JP)
  Receive Date: 20220503
  Receipt Date: 20220524
  Transmission Date: 20220721
  Serious: Yes (Other)
  Sender: FDA-Public Use
  Company Number: JP-Accord-262391

PATIENT
  Age: 75 Year
  Sex: Male

DRUGS (2)
  1. CISPLATIN [Suspect]
     Active Substance: CISPLATIN
     Indication: Gastric cancer
     Dosage: DAY 5 OF THE FIRST COURSE
     Route: 048
  2. TS-1 [Suspect]
     Active Substance: GIMERACIL\OTERACIL\TEGAFUR
     Indication: Gastric cancer
     Dosage: DAY 5 OF THE FIRST COURSE
     Route: 048

REACTIONS (5)
  - Altered state of consciousness [Recovering/Resolving]
  - Stomatitis [Recovering/Resolving]
  - Treatment failure [Unknown]
  - Hypophagia [Recovering/Resolving]
  - Dehydration [Recovering/Resolving]
